FAERS Safety Report 15361056 (Version 9)
Quarter: 2021Q1

REPORT INFORMATION
  Report Type: Report from Study
  Country: GR (occurrence: GR)
  Receive Date: 20180907
  Receipt Date: 20210301
  Transmission Date: 20210419
  Serious: Yes (Hospitalization)
  Sender: FDA-Public Use
  Company Number: GR-ROCHE-2178865

PATIENT
  Age: 42 Year
  Sex: Male
  Weight: 63 kg

DRUGS (13)
  1. FILICINE [Concomitant]
     Active Substance: FOLIC ACID
     Indication: IRON DEFICIENCY ANAEMIA
     Dates: start: 20180215
  2. BACTRIMEL [Concomitant]
     Active Substance: SULFAMETHOXAZOLE\TRIMETHOPRIM
     Indication: INFECTION PROPHYLAXIS
     Dates: start: 20181008, end: 20181022
  3. TARDYFERON [Concomitant]
     Active Substance: FERROUS SULFATE
     Indication: IRON DEFICIENCY ANAEMIA
     Dates: start: 20180208, end: 20180813
  4. FUNGUSTATIN [Concomitant]
     Active Substance: FLUCONAZOLE
     Indication: INFECTION PROPHYLAXIS
     Dates: start: 20181008, end: 20181022
  5. DOMPERIDONE [Concomitant]
     Active Substance: DOMPERIDONE
     Indication: ABDOMINAL PAIN
     Dates: start: 20180527, end: 20180630
  6. KLARICID [Concomitant]
     Active Substance: CLARITHROMYCIN
     Indication: PYREXIA
     Dates: start: 20180806, end: 20180810
  7. ATEZOLIZUMAB. [Suspect]
     Active Substance: ATEZOLIZUMAB
     Indication: MALIGNANT MELANOMA
     Dosage: DATE OF MOST RECENT DOSE (250 ML) OF BLINDED ATEZOLIZUMAB PRIOR TO AE ONSET; 02/JUL/2018
     Route: 042
     Dates: start: 20170522
  8. COBIMETINIB. [Suspect]
     Active Substance: COBIMETINIB
     Indication: MALIGNANT MELANOMA
     Dosage: (THREE, 20 MG TABLETS)?DATE OF MOST RECENT DOSE OF COBIMETINIB PRIOR TO AE ONSET: 02/AUG/2018
     Route: 048
     Dates: start: 20170424
  9. FERINJECT [Concomitant]
     Active Substance: FERRIC CARBOXYMALTOSE
     Indication: IRON DEFICIENCY
     Dates: start: 20180918, end: 20180918
  10. VEMURAFENIB. [Suspect]
     Active Substance: VEMURAFENIB
     Indication: MALIGNANT MELANOMA
     Dosage: 960 MG (FOUR, 240 MG TABLETS)?DATE OF MOST RECENT DOSE OF VEMURAFENIB PRIOR TO AE ONSET: 02/AUG/2018
     Route: 048
     Dates: start: 20170424
  11. FUROSEMIDE. [Concomitant]
     Active Substance: FUROSEMIDE
     Indication: OEDEMA PERIPHERAL
     Dates: start: 20180104
  12. LOSEC [Concomitant]
     Active Substance: OMEPRAZOLE
     Indication: ABDOMINAL PAIN
     Dates: start: 20180527, end: 20180630
  13. FILICINE [Concomitant]
     Active Substance: FOLIC ACID
     Indication: BLOOD FOLATE DECREASED
     Dates: start: 20180919, end: 20181127

REACTIONS (1)
  - Nephritis [Recovered/Resolved]

NARRATIVE: CASE EVENT DATE: 20180709
